FAERS Safety Report 4698805-5 (Version None)
Quarter: 2005Q2

REPORT INFORMATION
  Report Type: 
  Country: None (occurrence: None)
  Receive Date: 20050621
  Receipt Date: 20050309
  Transmission Date: 20051028
  Serious: Yes (Death)
  Sender: FDA-Public Use
  Company Number: PHEH2005US02968

PATIENT
  Sex: Female

DRUGS (1)
  1. EXELON [Suspect]
     Dosage: 1.5 MG, QD, UNK
     Route: 065

REACTIONS (4)
  - ASTHENIA [None]
  - DEMENTIA ALZHEIMER'S TYPE [None]
  - GASTROINTESTINAL DISORDER [None]
  - WEIGHT DECREASED [None]
